FAERS Safety Report 9580870 (Version 1)
Quarter: 2013Q4

REPORT INFORMATION
  Report Type: Spontaneous
  Country: US (occurrence: None)
  Receive Date: 20131001
  Receipt Date: 20131001
  Transmission Date: 20140711
  Serious: Yes (Other)
  Sender: FDA-Public Use
  Company Number: None

PATIENT
  Age: 44 Year
  Sex: Female

DRUGS (1)
  1. MONISTAT 1 DAY [Suspect]
     Indication: FUNGAL INFECTION

REACTIONS (6)
  - Burning sensation [None]
  - Pruritus [None]
  - Pain [None]
  - Application site irritation [None]
  - Chemical injury [None]
  - Sexual dysfunction [None]
